FAERS Safety Report 17652250 (Version 1)
Quarter: 2020Q2

REPORT INFORMATION
  Report Type: Spontaneous
  Country: AT (occurrence: AT)
  Receive Date: 20200409
  Receipt Date: 20200409
  Transmission Date: 20200713
  Serious: Yes (Other)
  Sender: FDA-Public Use
  Company Number: AT-CELGENEUS-AUT-20200401526

PATIENT
  Sex: Female

DRUGS (11)
  1. FORTECORTIN [Suspect]
     Active Substance: DEXAMETHASONE
     Indication: OCULAR LYMPHOMA
     Dosage: 20 MILLIGRAM
     Route: 048
  2. RITUXIMAB. [Suspect]
     Active Substance: RITUXIMAB
     Indication: OCULAR LYMPHOMA
     Dosage: 1400 MILLIGRAM
     Route: 058
  3. CYTARABINE. [Suspect]
     Active Substance: CYTARABINE
     Indication: OCULAR LYMPHOMA
     Dosage: 2 DOSAGE FORMS
     Route: 037
  4. TEMOZOLOMIDE. [Suspect]
     Active Substance: TEMOZOLOMIDE
     Indication: OCULAR LYMPHOMA
     Dosage: 150 MILLIGRAM/SQ. METER
     Route: 037
  5. RITUXIMAB. [Suspect]
     Active Substance: RITUXIMAB
     Indication: OFF LABEL USE
     Route: 065
  6. POMALIDOMIDE [Suspect]
     Active Substance: POMALIDOMIDE
     Indication: OCULAR LYMPHOMA
     Dosage: 4 MILLIGRAM
     Route: 048
  7. CYTARABINE. [Suspect]
     Active Substance: CYTARABINE
     Indication: PRODUCT USED FOR UNKNOWN INDICATION
     Route: 065
  8. POMALIDOMIDE [Suspect]
     Active Substance: POMALIDOMIDE
     Indication: OFF LABEL USE
  9. FORTECORTIN [Suspect]
     Active Substance: DEXAMETHASONE
     Indication: OFF LABEL USE
  10. TEMOZOLOMIDE. [Suspect]
     Active Substance: TEMOZOLOMIDE
     Indication: OFF LABEL USE
  11. CYTARABINE. [Suspect]
     Active Substance: CYTARABINE
     Indication: OFF LABEL USE

REACTIONS (4)
  - Neurotoxicity [Recovered/Resolved]
  - Adrenal insufficiency [Recovered/Resolved]
  - Hypogammaglobulinaemia [Recovered/Resolved]
  - Pneumonia [Recovered/Resolved]
